FAERS Safety Report 15336755 (Version 6)
Quarter: 2019Q3

REPORT INFORMATION
  Report Type: Report from Study
  Country: US (occurrence: US)
  Receive Date: 20180831
  Receipt Date: 20190807
  Transmission Date: 20191004
  Serious: Yes (Other)
  Sender: FDA-Public Use
  Company Number: PHHY2018US084203

PATIENT
  Sex: Female
  Weight: 91.16 kg

DRUGS (6)
  1. METHOTREXATE. [Concomitant]
     Active Substance: METHOTREXATE
     Indication: PRODUCT USED FOR UNKNOWN INDICATION
     Route: 065
  2. PLAQUENIL [Concomitant]
     Active Substance: HYDROXYCHLOROQUINE SULFATE
     Indication: PRODUCT USED FOR UNKNOWN INDICATION
     Route: 065
  3. PEPCID [Concomitant]
     Active Substance: FAMOTIDINE
     Indication: PRODUCT USED FOR UNKNOWN INDICATION
     Route: 065
  4. PROTONIX [Concomitant]
     Active Substance: PANTOPRAZOLE SODIUM
     Indication: PRODUCT USED FOR UNKNOWN INDICATION
     Route: 065
  5. FOLIC ACID. [Concomitant]
     Active Substance: FOLIC ACID
     Indication: PRODUCT USED FOR UNKNOWN INDICATION
     Route: 065
  6. COSENTYX [Suspect]
     Active Substance: SECUKINUMAB
     Indication: PSORIATIC ARTHROPATHY
     Dosage: 300 MG, QMO (EVERY 4 WEEKS)
     Route: 058
     Dates: start: 20180501

REACTIONS (18)
  - Pain in extremity [Unknown]
  - Psoriasis [Unknown]
  - Scratch [Unknown]
  - Injection site erythema [Recovered/Resolved]
  - Device issue [Unknown]
  - Injection site bruising [Unknown]
  - Sleep disorder [Recovering/Resolving]
  - Arthralgia [Unknown]
  - Skin ulcer [Unknown]
  - Therapeutic response shortened [Unknown]
  - Drug ineffective [Unknown]
  - Cellulitis [Unknown]
  - Back pain [Unknown]
  - Injection site pruritus [Recovered/Resolved]
  - Psoriatic arthropathy [Unknown]
  - Fatigue [Not Recovered/Not Resolved]
  - Joint stiffness [Unknown]
  - Abdominal pain upper [Recovered/Resolved]
